FAERS Safety Report 14374061 (Version 1)
Quarter: 2018Q1

REPORT INFORMATION
  Report Type: Report from Study
  Country: None (occurrence: BR)
  Receive Date: 20180111
  Receipt Date: 20180111
  Transmission Date: 20180509
  Serious: Yes (Hospitalization, Other)
  Sender: FDA-Public Use
  Company Number: BR-ABBVIE-13P-020-1083142-00

PATIENT
  Age: 27 Year
  Sex: Female
  Weight: 40 kg

DRUGS (4)
  1. CIMZIA [Concomitant]
     Active Substance: CERTOLIZUMAB PEGOL
     Indication: CROHN^S DISEASE
     Route: 050
  2. HUMIRA [Suspect]
     Active Substance: ADALIMUMAB
     Indication: CROHN^S DISEASE
     Dosage: LOADING DOSE/ WEEK 0
     Route: 058
     Dates: start: 20130101, end: 20130101
  3. HUMIRA [Suspect]
     Active Substance: ADALIMUMAB
     Route: 058
  4. HUMIRA [Suspect]
     Active Substance: ADALIMUMAB
     Dosage: MAINTENANCE DOSE.
     Route: 058
     Dates: start: 201706

REACTIONS (7)
  - Appendicectomy [Unknown]
  - Gastrointestinal infection [Recovered/Resolved]
  - Intestinal stenosis [Recovering/Resolving]
  - Crohn^s disease [Unknown]
  - Cholecystectomy [Unknown]
  - Lung infection [Unknown]
  - Intestinal operation [Unknown]

NARRATIVE: CASE EVENT DATE: 20171117
